FAERS Safety Report 9404738 (Version 1)
Quarter: 2013Q3

REPORT INFORMATION
  Report Type: Spontaneous
  Country: US (occurrence: None)
  Receive Date: 20130716
  Receipt Date: 20130716
  Transmission Date: 20140515
  Serious: No
  Sender: FDA-Public Use
  Company Number: None

PATIENT
  Sex: Female
  Weight: 108.41 kg

DRUGS (2)
  1. PANTOPRAZOLE, 40 MG [Suspect]
     Indication: DYSPEPSIA
     Route: 048
     Dates: start: 2008, end: 2012
  2. PANTOPRAZOLE, 40 MG [Suspect]
     Indication: PEPTIC ULCER
     Route: 048
     Dates: start: 2008, end: 2012

REACTIONS (2)
  - Abdominal pain upper [None]
  - Depression [None]
